FAERS Safety Report 19469333 (Version 1)
Quarter: 2021Q2

REPORT INFORMATION
  Report Type: Spontaneous
  Country: US (occurrence: US)
  Receive Date: 20210628
  Receipt Date: 20210628
  Transmission Date: 20210717
  Serious: Yes (Hospitalization)
  Sender: FDA-Public Use
  Company Number: US-ELI_LILLY_AND_COMPANY-US202106009313

PATIENT
  Sex: Female

DRUGS (3)
  1. CYMBALTA [Suspect]
     Active Substance: DULOXETINE HYDROCHLORIDE
     Dosage: 20 MG, BID
     Route: 048
  2. CYMBALTA [Suspect]
     Active Substance: DULOXETINE HYDROCHLORIDE
     Indication: ANXIETY
     Dosage: 30 MG, BID
     Route: 048
     Dates: start: 2013
  3. DULOXETINE HYDROCHLORIDE. [Suspect]
     Active Substance: DULOXETINE HYDROCHLORIDE
     Indication: ANXIETY
     Dosage: UNK UNK, UNKNOWN
     Route: 065

REACTIONS (5)
  - Muscle spasms [Recovered/Resolved]
  - Impaired gastric emptying [Not Recovered/Not Resolved]
  - Electric shock sensation [Recovered/Resolved]
  - Panic disorder [Not Recovered/Not Resolved]
  - Drug withdrawal syndrome [Unknown]
